FAERS Safety Report 7764367-9 (Version None)
Quarter: 2011Q3

REPORT INFORMATION
  Report Type: 
  Country: None (occurrence: None)
  Receive Date: 20110921
  Receipt Date: 20110907
  Transmission Date: 20111222
  Serious: Yes (Other)
  Sender: FDA-Public Use
  Company Number: JP-ELI_LILLY_AND_COMPANY-JP201106008298

PATIENT
  Age: 55 Year
  Sex: Female

DRUGS (12)
  1. PREDNISOLONE [Concomitant]
     Dosage: 15 MG, QD
     Route: 048
  2. LYRICA [Concomitant]
     Dosage: 300 MG, QD
     Route: 048
  3. PRIMPERAN TAB [Concomitant]
     Dosage: 15 MG, QD
     Route: 048
  4. VFEND [Concomitant]
     Dosage: 400 MG, QD
     Route: 048
     Dates: start: 20110509, end: 20110617
  5. ULCERLMIN [Concomitant]
     Dosage: 2.7 G, QD
     Route: 048
  6. RABEPRAZOLE SODIUM [Concomitant]
     Dosage: 20 MG, QD
     Route: 048
  7. SULFAMETHOXAZOLE [Concomitant]
     Dosage: 1 G, QD
     Route: 048
  8. ALLOID G [Concomitant]
     Dosage: 90 ML, QD
     Route: 048
     Dates: start: 20110601
  9. MAGNESIUM SULFATE [Concomitant]
     Dosage: 2 G, QD
     Route: 048
  10. MUCOSTA [Concomitant]
     Dosage: 300 MG, QD
     Route: 048
     Dates: start: 20110601
  11. FORTEO [Suspect]
     Indication: OSTEOPOROSIS
     Dosage: UNK
     Route: 058
     Dates: start: 20110601, end: 20110617
  12. ALFAROL [Concomitant]
     Dosage: 0.5 UG, QD
     Route: 048

REACTIONS (1)
  - LIVER DISORDER [None]
